FAERS Safety Report 8544180-5 (Version None)
Quarter: 2012Q3

REPORT INFORMATION
  Report Type: 
  Country: None (occurrence: None)
  Receive Date: 20120727
  Receipt Date: 20120719
  Transmission Date: 20120928
  Serious: Yes (Death)
  Sender: FDA-Public Use
  Company Number: ZA-ABBOTT-12P-143-0951850-00

PATIENT

DRUGS (14)
  1. SULTEPYN [Concomitant]
     Indication: UPPER RESPIRATORY TRACT INFECTION
     Route: 048
     Dates: start: 20120514, end: 20120530
  2. CLOPAMON [Concomitant]
     Indication: VOMITING
     Route: 048
     Dates: start: 20120514, end: 20120530
  3. DPH [Concomitant]
     Indication: UPPER RESPIRATORY TRACT INFECTION
     Route: 048
     Dates: start: 20120514, end: 20120530
  4. FERROUS SULFATE TAB [Concomitant]
     Indication: ANAEMIA
     Dates: start: 20120619, end: 20120626
  5. VITAMIN B COMPLEX CAP [Concomitant]
     Indication: VITAMIN SUPPLEMENTATION
     Dates: start: 20120619, end: 20120626
  6. REHIDRATE [Concomitant]
     Indication: DIARRHOEA
     Route: 048
     Dates: start: 20120619, end: 20120626
  7. PHENAZOPYRIDINE HCL TAB [Concomitant]
     Indication: DIARRHOEA
     Dates: start: 20120514, end: 20120530
  8. RANCEPH [Concomitant]
     Indication: UPPER RESPIRATORY TRACT INFECTION
     Route: 048
     Dates: start: 20120514, end: 20120530
  9. NYSTACID [Concomitant]
     Indication: ORAL CANDIDIASIS
     Dates: start: 20120619, end: 20120626
  10. KALETRA [Suspect]
     Indication: HIV INFECTION
     Route: 048
     Dates: start: 20120417, end: 20120625
  11. EMTRICITABINE AND TENOFOVIR DISOPROXIL FUMARATE [Concomitant]
     Indication: HIV INFECTION
     Route: 048
     Dates: start: 20120417, end: 20120625
  12. ASCORBIC ACID [Concomitant]
     Indication: ANAEMIA
     Dates: start: 20120619, end: 20120626
  13. BACTRIM [Concomitant]
     Indication: PROPHYLAXIS
     Route: 048
     Dates: start: 20120619, end: 20120626
  14. FOLIC ACID [Concomitant]
     Indication: ANAEMIA
     Route: 048
     Dates: start: 20120619, end: 20120626

REACTIONS (1)
  - SUDDEN DEATH [None]
